FAERS Safety Report 5912049-8 (Version None)
Quarter: 2008Q4

REPORT INFORMATION
  Report Type: 
  Country: None (occurrence: None)
  Receive Date: 20081006
  Receipt Date: 20080930
  Transmission Date: 20090506
  Serious: Yes (Hospitalization)
  Sender: FDA-Public Use
  Company Number: 2008JP003568

PATIENT
  Age: 44 Year
  Sex: Female
  Weight: 53.3 kg

DRUGS (24)
  1. TACROLIMUS [Suspect]
     Indication: LUPUS NEPHRITIS
     Dosage: 1 MG, D, ORAL, 2 MG, D, ORAL, 3MG D, ORAL
     Route: 048
     Dates: start: 20071015, end: 20071018
  2. TACROLIMUS [Suspect]
     Indication: LUPUS NEPHRITIS
     Dosage: 1 MG, D, ORAL, 2 MG, D, ORAL, 3MG D, ORAL
     Route: 048
     Dates: start: 20071019, end: 20071118
  3. TACROLIMUS [Suspect]
     Indication: LUPUS NEPHRITIS
     Dosage: 1 MG, D, ORAL, 2 MG, D, ORAL, 3MG D, ORAL
     Route: 048
     Dates: start: 20071119
  4. PREDNISOLONE [Suspect]
     Indication: LUPUS NEPHRITIS
     Dosage: SEE IMAGE, ORAL
     Route: 048
     Dates: end: 20071019
  5. PREDNISOLONE [Suspect]
     Indication: LUPUS NEPHRITIS
     Dosage: SEE IMAGE, ORAL
     Route: 048
     Dates: start: 20071020, end: 20071118
  6. PREDNISOLONE [Suspect]
     Indication: LUPUS NEPHRITIS
     Dosage: SEE IMAGE, ORAL
     Route: 048
     Dates: start: 20071119, end: 20071209
  7. PREDNISOLONE [Suspect]
     Indication: LUPUS NEPHRITIS
     Dosage: SEE IMAGE, ORAL
     Route: 048
     Dates: start: 20071210, end: 20080106
  8. PREDNISOLONE [Suspect]
     Indication: LUPUS NEPHRITIS
     Dosage: SEE IMAGE, ORAL
     Route: 048
     Dates: start: 20080107, end: 20080203
  9. PREDNISOLONE [Suspect]
     Indication: LUPUS NEPHRITIS
     Dosage: SEE IMAGE, ORAL
     Route: 048
     Dates: start: 20080204, end: 20080302
  10. PREDNISOLONE [Suspect]
     Indication: LUPUS NEPHRITIS
     Dosage: SEE IMAGE, ORAL
     Route: 048
     Dates: start: 20080303, end: 20080330
  11. PREDNISOLONE [Suspect]
     Indication: LUPUS NEPHRITIS
     Dosage: SEE IMAGE, ORAL
     Route: 048
     Dates: start: 20080331, end: 20080427
  12. PREDNISOLONE [Suspect]
     Indication: LUPUS NEPHRITIS
     Dosage: SEE IMAGE, ORAL
     Route: 048
     Dates: start: 20080428
  13. ONEALPHA (ALFACALCIDOL) [Concomitant]
  14. LIPITOR [Concomitant]
  15. PARIET (RABEPRAZOLE SODIUM) [Concomitant]
  16. GASMOTIN (MOSAPRIDE CITRATE) [Concomitant]
  17. BIOFERMIN (STREPTOCOCCUS FAECALIS, BACILLUS SUBTILIS, LACTOBACILLUS AC [Concomitant]
  18. SLOW-K [Concomitant]
  19. DIAMOX (ACETAZOLAMIDE SODIUM) [Concomitant]
  20. DIOVAN [Concomitant]
  21. EURODIN [Concomitant]
  22. BACTRIM [Concomitant]
  23. DEPAS (ETIZOLAM) [Concomitant]
  24. FOSAMAC (ALENDRONATE SODIUM) [Concomitant]

REACTIONS (3)
  - HEADACHE [None]
  - OCULAR HYPERTENSION [None]
  - TREMOR [None]
